FAERS Safety Report 6223890-9 (Version None)
Quarter: 2009Q2

REPORT INFORMATION
  Report Type: 
  Country: None (occurrence: None)
  Receive Date: 20090611
  Receipt Date: 20090303
  Transmission Date: 20091009
  Serious: No
  Sender: FDA-Public Use
  Company Number: US-ABBOTT-09P-163-0560453-00

PATIENT
  Sex: Female
  Weight: 82.628 kg

DRUGS (1)
  1. HUMIRA [Suspect]
     Indication: CROHN'S DISEASE
     Dates: start: 20080929

REACTIONS (3)
  - COUGH [None]
  - EAR INFECTION [None]
  - RESPIRATORY TRACT CONGESTION [None]
